FAERS Safety Report 18870531 (Version 2)
Quarter: 2021Q1

REPORT INFORMATION
  Report Type: Spontaneous
  Country: BR (occurrence: BR)
  Receive Date: 20210210
  Receipt Date: 20210223
  Transmission Date: 20210420
  Serious: Yes (Other)
  Sender: FDA-Public Use
  Company Number: BR-CELLTRION INC.-2021BR001115

PATIENT

DRUGS (3)
  1. REMSIMA [Suspect]
     Active Substance: INFLIXIMAB
     Indication: CROHN^S DISEASE
     Dosage: 10 ML EVERY 15 DAYS (FIRST DOSE)
     Route: 042
     Dates: start: 20201218
  2. REMSIMA [Suspect]
     Active Substance: INFLIXIMAB
     Dosage: 4 FLAKS (EVERY FLASK WITH 100 MG), SECOND DOSE
     Route: 042
     Dates: start: 20210120
  3. SPORANOX [Concomitant]
     Active Substance: ITRACONAZOLE
     Indication: FUNGAL INFECTION
     Dosage: ROUTE: DERMIC

REACTIONS (6)
  - Petechiae [Recovered/Resolved]
  - Inappropriate schedule of product administration [Unknown]
  - Back pain [Recovered/Resolved]
  - Nausea [Recovered/Resolved]
  - Overdose [Unknown]
  - Off label use [Unknown]

NARRATIVE: CASE EVENT DATE: 20210120
